FAERS Safety Report 8428147-3 (Version None)
Quarter: 2012Q2

REPORT INFORMATION
  Report Type: 
  Country: None (occurrence: None)
  Receive Date: 20120611
  Receipt Date: 20120606
  Transmission Date: 20120825
  Serious: Yes (Death, Other)
  Sender: FDA-Public Use
  Company Number: US-ASTRAZENECA-2012SE37727

PATIENT
  Age: 83 Year
  Sex: Female

DRUGS (1)
  1. BRILINTA [Suspect]
     Dosage: LOADING DOSE
     Route: 048
     Dates: start: 20120528

REACTIONS (2)
  - MYOCARDIAL INFARCTION [None]
  - DEATH [None]
